FAERS Safety Report 14949622 (Version 2)
Quarter: 2018Q3

REPORT INFORMATION
  Report Type: Spontaneous
  Country: JP (occurrence: JP)
  Receive Date: 20180529
  Receipt Date: 20180702
  Transmission Date: 20181010
  Serious: Yes (Other)
  Sender: FDA-Public Use
  Company Number: JP-GILEAD-2018-0340493

PATIENT
  Sex: Female

DRUGS (1)
  1. HARVONI [Suspect]
     Active Substance: LEDIPASVIR\SOFOSBUVIR
     Indication: HEPATITIS C
     Dosage: UNK UNKNOWN, UNK
     Route: 048
     Dates: start: 2015

REACTIONS (5)
  - Oedema peripheral [Unknown]
  - Hepatic cirrhosis [Unknown]
  - Frequent bowel movements [Unknown]
  - Platelet count decreased [Unknown]
  - Swelling face [Unknown]
